FAERS Safety Report 13972446 (Version 5)
Quarter: 2018Q1

REPORT INFORMATION
  Report Type: Spontaneous
  Country: JP (occurrence: JP)
  Receive Date: 20170914
  Receipt Date: 20180117
  Transmission Date: 20180508
  Serious: Yes (Hospitalization)
  Sender: FDA-Public Use
  Company Number: JP-CELGENEUS-JPN-20170901717

PATIENT
  Age: 78 Year
  Sex: Female
  Weight: 41.8 kg

DRUGS (55)
  1. ACETAMINOPHEN. [Concomitant]
     Active Substance: ACETAMINOPHEN
     Dosage: 400
     Route: 048
     Dates: start: 20170425
  2. DEXCHLORPHENIRAMINE [Concomitant]
     Active Substance: DEXCHLORPHENIRAMINE
     Dosage: 50
     Route: 041
     Dates: start: 20170321
  3. DEXCHLORPHENIRAMINE [Concomitant]
     Active Substance: DEXCHLORPHENIRAMINE
     Dosage: 5
     Route: 041
     Dates: start: 20170411
  4. DEXCHLORPHENIRAMINE [Concomitant]
     Active Substance: DEXCHLORPHENIRAMINE
     Dosage: 5
     Route: 041
     Dates: start: 20170725
  5. RANITIDINE. [Concomitant]
     Active Substance: RANITIDINE
     Indication: PRODUCT USED FOR UNKNOWN INDICATION
     Dosage: 50
     Route: 041
     Dates: start: 20170307
  6. RANITIDINE. [Concomitant]
     Active Substance: RANITIDINE
     Dosage: 50
     Route: 041
     Dates: start: 20170314
  7. RANITIDINE. [Concomitant]
     Active Substance: RANITIDINE
     Dosage: 5
     Route: 041
     Dates: start: 20170321
  8. RANITIDINE. [Concomitant]
     Active Substance: RANITIDINE
     Dosage: 50
     Route: 041
     Dates: start: 20170530
  9. VALACYCLOVIR [Concomitant]
     Active Substance: VALACYCLOVIR HYDROCHLORIDE
     Indication: PRODUCT USED FOR UNKNOWN INDICATION
     Route: 065
     Dates: start: 20140620
  10. MAGNESIUM [Concomitant]
     Active Substance: MAGNESIUM
     Route: 065
     Dates: start: 20170904
  11. POMALYST [Suspect]
     Active Substance: POMALIDOMIDE
     Indication: PLASMA CELL MYELOMA
     Dosage: 4 MILLIGRAM
     Route: 048
     Dates: start: 20170307
  12. DEXAMETHASONE ORAL [Suspect]
     Active Substance: DEXAMETHASONE
     Indication: PLASMA CELL MYELOMA
     Dosage: 20 MILLIGRAM
     Route: 048
     Dates: start: 20170307, end: 20170820
  13. MAGNESIUM [Concomitant]
     Active Substance: MAGNESIUM
     Indication: PRODUCT USED FOR UNKNOWN INDICATION
     Route: 065
     Dates: start: 20170823
  14. DEXAMETHASONE IV [Suspect]
     Active Substance: DEXAMETHASONE
     Indication: PLASMA CELL MYELOMA
     Dosage: 8 MILLIGRAM
     Route: 041
     Dates: start: 20170307, end: 20170919
  15. ACETAMINOPHEN. [Concomitant]
     Active Substance: ACETAMINOPHEN
     Dosage: 400
     Route: 048
     Dates: start: 20170314
  16. ACETAMINOPHEN. [Concomitant]
     Active Substance: ACETAMINOPHEN
     Dosage: 400
     Route: 048
     Dates: start: 20170321
  17. ACETAMINOPHEN. [Concomitant]
     Active Substance: ACETAMINOPHEN
     Dosage: 400
     Route: 048
     Dates: start: 20170418
  18. ACETAMINOPHEN. [Concomitant]
     Active Substance: ACETAMINOPHEN
     Dosage: 400
     Route: 048
     Dates: start: 20170530
  19. ACETAMINOPHEN. [Concomitant]
     Active Substance: ACETAMINOPHEN
     Dosage: 400
     Route: 048
     Dates: start: 20170725
  20. DEXCHLORPHENIRAMINE [Concomitant]
     Active Substance: DEXCHLORPHENIRAMINE
     Indication: PRODUCT USED FOR UNKNOWN INDICATION
     Dosage: 5
     Route: 041
     Dates: start: 20170307
  21. DEXCHLORPHENIRAMINE [Concomitant]
     Active Substance: DEXCHLORPHENIRAMINE
     Dosage: 5
     Route: 041
     Dates: start: 20170314
  22. DEXCHLORPHENIRAMINE [Concomitant]
     Active Substance: DEXCHLORPHENIRAMINE
     Dosage: 5
     Route: 041
     Dates: start: 20170425
  23. DEXCHLORPHENIRAMINE [Concomitant]
     Active Substance: DEXCHLORPHENIRAMINE
     Dosage: 5
     Route: 041
     Dates: start: 20170627
  24. DEXCHLORPHENIRAMINE [Concomitant]
     Active Substance: DEXCHLORPHENIRAMINE
     Dosage: 5
     Route: 041
     Dates: start: 20170822
  25. RANITIDINE. [Concomitant]
     Active Substance: RANITIDINE
     Dosage: 50
     Route: 041
     Dates: start: 20170627
  26. ELOTUZUMAB. [Concomitant]
     Active Substance: ELOTUZUMAB
     Indication: PLASMA CELL MYELOMA
     Dosage: 852 MG
     Route: 041
     Dates: start: 20170307, end: 20170822
  27. ACETAMINOPHEN. [Concomitant]
     Active Substance: ACETAMINOPHEN
     Indication: PRODUCT USED FOR UNKNOWN INDICATION
     Dosage: 400
     Route: 048
     Dates: start: 20170307
  28. ACETAMINOPHEN. [Concomitant]
     Active Substance: ACETAMINOPHEN
     Dosage: 400
     Route: 048
     Dates: start: 20170411
  29. ACETAMINOPHEN. [Concomitant]
     Active Substance: ACETAMINOPHEN
     Dosage: 400
     Route: 048
     Dates: start: 20170627
  30. ACETAMINOPHEN. [Concomitant]
     Active Substance: ACETAMINOPHEN
     Dosage: 400
     Route: 048
     Dates: start: 20170822
  31. RANITIDINE. [Concomitant]
     Active Substance: RANITIDINE
     Dosage: 50
     Route: 041
     Dates: start: 20170418
  32. RANITIDINE. [Concomitant]
     Active Substance: RANITIDINE
     Dosage: 50
     Route: 041
     Dates: start: 20170725
  33. RANITIDINE. [Concomitant]
     Active Substance: RANITIDINE
     Dosage: 50
     Route: 041
     Dates: start: 20170822
  34. DICLOD OPHTAMIC SOLUTION [Concomitant]
     Indication: PRODUCT USED FOR UNKNOWN INDICATION
     Route: 065
  35. HYALURONATE [Concomitant]
     Active Substance: HYALURONIC ACID
     Indication: PRODUCT USED FOR UNKNOWN INDICATION
     Route: 065
     Dates: start: 20170725
  36. MYDRIN-P [Concomitant]
     Active Substance: PHENYLEPHRINE HYDROCHLORIDE\TROPICAMIDE
     Indication: PRODUCT USED FOR UNKNOWN INDICATION
     Route: 047
  37. ELOTUZUMAB. [Concomitant]
     Active Substance: ELOTUZUMAB
     Dosage: 20 MILLIGRAM/KILOGRAM
     Route: 065
     Dates: end: 20170919
  38. ACETAMINOPHEN. [Concomitant]
     Active Substance: ACETAMINOPHEN
     Dosage: 400
     Route: 048
     Dates: start: 20170328
  39. RANITIDINE. [Concomitant]
     Active Substance: RANITIDINE
     Dosage: 50
     Route: 041
     Dates: start: 20170328
  40. RANITIDINE. [Concomitant]
     Active Substance: RANITIDINE
     Dosage: 50
     Route: 041
     Dates: start: 20170404
  41. CARVEDILOL. [Concomitant]
     Active Substance: CARVEDILOL
     Indication: PRODUCT USED FOR UNKNOWN INDICATION
     Route: 065
     Dates: start: 20140519
  42. CEFAZOLIN SODIUM. [Concomitant]
     Active Substance: CEFAZOLIN SODIUM
     Indication: PRODUCT USED FOR UNKNOWN INDICATION
     Route: 065
  43. ACETAMINOPHEN. [Concomitant]
     Active Substance: ACETAMINOPHEN
     Dosage: 400
     Route: 048
     Dates: start: 20170404
  44. DEXCHLORPHENIRAMINE [Concomitant]
     Active Substance: DEXCHLORPHENIRAMINE
     Dosage: 5
     Route: 041
     Dates: start: 20170328
  45. RANITIDINE. [Concomitant]
     Active Substance: RANITIDINE
     Dosage: 50
     Route: 041
     Dates: start: 20170411
  46. SENNA [Concomitant]
     Active Substance: SENNA LEAF\SENNOSIDES\SENNOSIDES A AND B
     Indication: PRODUCT USED FOR UNKNOWN INDICATION
     Route: 065
     Dates: start: 20120323
  47. LOXOPROFEN [Concomitant]
     Active Substance: LOXOPROFEN
     Indication: PRODUCT USED FOR UNKNOWN INDICATION
     Route: 065
     Dates: start: 20161018
  48. NEOSYNESIN [Concomitant]
     Active Substance: PHENYLEPHRINE HYDROCHLORIDE
     Indication: PRODUCT USED FOR UNKNOWN INDICATION
     Route: 065
  49. DEXCHLORPHENIRAMINE [Concomitant]
     Active Substance: DEXCHLORPHENIRAMINE
     Dosage: 5
     Route: 041
     Dates: start: 20170404
  50. DEXCHLORPHENIRAMINE [Concomitant]
     Active Substance: DEXCHLORPHENIRAMINE
     Dosage: 5
     Route: 041
     Dates: start: 20170418
  51. DEXCHLORPHENIRAMINE [Concomitant]
     Active Substance: DEXCHLORPHENIRAMINE
     Dosage: 50
     Route: 041
     Dates: start: 20170530
  52. RANITIDINE. [Concomitant]
     Active Substance: RANITIDINE
     Dosage: 50
     Route: 041
     Dates: start: 20170425
  53. PROBIOTIC [Concomitant]
     Active Substance: PROBIOTICS NOS
     Indication: PRODUCT USED FOR UNKNOWN INDICATION
     Route: 065
     Dates: start: 20140603
  54. ACETYLSALICYLIC ACID [Concomitant]
     Active Substance: ASPIRIN
     Indication: THROMBOSIS PROPHYLAXIS
     Route: 065
     Dates: start: 20170307
  55. LEVOFLOXACIN. [Concomitant]
     Active Substance: LEVOFLOXACIN
     Indication: THROMBOSIS PROPHYLAXIS
     Route: 065
     Dates: start: 20170627, end: 20170724

REACTIONS (2)
  - Cataract [Recovered/Resolved]
  - Cataract [Recovered/Resolved]

NARRATIVE: CASE EVENT DATE: 20170906
